FAERS Safety Report 9577781 (Version 1)
Quarter: 2013Q4

REPORT INFORMATION
  Report Type: Spontaneous
  Country: US (occurrence: US)
  Receive Date: 20131001
  Receipt Date: 20131001
  Transmission Date: 20140711
  Serious: No
  Sender: FDA-Public Use
  Company Number: US-AMGEN-USASP2013009759

PATIENT
  Age: 79 Year
  Sex: Female
  Weight: 58.5 kg

DRUGS (10)
  1. ENBREL [Suspect]
     Indication: RHEUMATOID ARTHRITIS
     Dosage: 50 MG, QWK
     Route: 058
  2. CENTRUM                            /02217401/ [Concomitant]
     Dosage: UNK
  3. PAXIL                              /00500401/ [Concomitant]
     Dosage: 20 MG, UNK
  4. COUMADIN                           /00014802/ [Concomitant]
     Dosage: 3 MG, UNK
  5. LIPITOR [Concomitant]
     Dosage: 10 MG, UNK
  6. FLONASE [Concomitant]
     Dosage: 0.05 %, UNK
  7. PREDNISOLONE [Concomitant]
     Dosage: 5 MG, UNK
  8. VITAMIN D                          /00107901/ [Concomitant]
     Dosage: 1000 UNIT, UNK
  9. CALCIUM [Concomitant]
     Dosage: 500 UNK, UNK
  10. ZEBETA [Concomitant]
     Dosage: 5 MG, UNK

REACTIONS (1)
  - Pneumonia [Unknown]
